FAERS Safety Report 6846661-9 (Version None)
Quarter: 2010Q3

REPORT INFORMATION
  Report Type: 
  Country: None (occurrence: None)
  Receive Date: 20100715
  Receipt Date: 20070928
  Transmission Date: 20110219
  Serious: Yes (Other)
  Sender: FDA-Public Use
  Company Number: US-PFIZER INC-2007079186

PATIENT
  Sex: Female
  Weight: 62.6 kg

DRUGS (2)
  1. CHANTIX [Suspect]
     Indication: SMOKING CESSATION THERAPY
     Route: 048
     Dates: start: 20070903, end: 20070916
  2. ALPRAZOLAM [Concomitant]

REACTIONS (11)
  - ABDOMINAL DISCOMFORT [None]
  - CONSTIPATION [None]
  - DEPRESSION [None]
  - DISORIENTATION [None]
  - FEELING ABNORMAL [None]
  - HAEMATOCHEZIA [None]
  - IRRITABILITY [None]
  - NAUSEA [None]
  - NIGHTMARE [None]
  - STRESS [None]
  - VOMITING [None]
